FAERS Safety Report 17032641 (Version 1)
Quarter: 2019Q4

REPORT INFORMATION
  Report Type: Spontaneous
  Country: US (occurrence: US)
  Receive Date: 20191114
  Receipt Date: 20191114
  Transmission Date: 20200122
  Serious: Yes (Other)
  Sender: FDA-Public Use
  Company Number: US-BAYER-2019-200815

PATIENT
  Age: 35 Year
  Sex: Female

DRUGS (1)
  1. GENUINE BAYER ASPIRIN [Suspect]
     Active Substance: ASPIRIN
     Indication: MUSCULOSKELETAL PAIN
     Dosage: UNK
     Route: 048

REACTIONS (3)
  - Extra dose administered [Unknown]
  - Deafness transitory [Unknown]
  - Dysuria [Unknown]
